FAERS Safety Report 6676218-4 (Version None)
Quarter: 2010Q2

REPORT INFORMATION
  Report Type: 
  Country: None (occurrence: None)
  Receive Date: 20100412
  Receipt Date: 20100401
  Transmission Date: 20101027
  Serious: Yes (Other)
  Sender: FDA-Public Use
  Company Number: US-JNJFOC-20100401195

PATIENT
  Sex: Female
  Weight: 61.24 kg

DRUGS (10)
  1. DURAGESIC-100 [Suspect]
     Indication: BACK PAIN
     Route: 062
  2. DURAGESIC-100 [Suspect]
     Indication: NECK PAIN
     Route: 062
  3. GABAPENTIN [Concomitant]
     Indication: NECK PAIN
     Route: 048
  4. GABAPENTIN [Concomitant]
     Indication: BACK PAIN
     Route: 048
  5. METHOCARBAMOL [Concomitant]
     Indication: MUSCLE RELAXANT THERAPY
     Route: 048
  6. BUPROPION [Concomitant]
     Indication: DEPRESSION
     Route: 048
  7. SINGULAIR [Concomitant]
     Indication: ASTHMA
     Route: 048
  8. CYMBALTA [Concomitant]
     Indication: BACK PAIN
     Route: 048
  9. CYMBALTA [Concomitant]
     Indication: DEPRESSION
     Route: 048
  10. OMEPRAZOLE [Concomitant]
     Indication: GASTRIC DISORDER
     Route: 048

REACTIONS (5)
  - INTERVERTEBRAL DISC DISORDER [None]
  - NECK PAIN [None]
  - PRODUCT ADHESION ISSUE [None]
  - SKIN LESION [None]
  - WRONG TECHNIQUE IN DRUG USAGE PROCESS [None]
